FAERS Safety Report 21166864 (Version 1)
Quarter: 2022Q3

REPORT INFORMATION
  Report Type: Report from Study
  Country: CA (occurrence: CA)
  Receive Date: 20220803
  Receipt Date: 20220803
  Transmission Date: 20221026
  Serious: Yes (Other)
  Sender: FDA-Public Use
  Company Number: CA-BAYER-2021A232762

PATIENT
  Age: 41 Year
  Sex: Female

DRUGS (63)
  1. CIPROFLOXACIN [Suspect]
     Active Substance: CIPROFLOXACIN
     Indication: Migraine
     Dosage: 500 MG
     Route: 065
  2. PROPRANOLOL [Suspect]
     Active Substance: PROPRANOLOL HYDROCHLORIDE
     Indication: Migraine
     Dosage: 40 MG
     Route: 065
  3. ESOMEPRAZOLE MAGNESIUM [Suspect]
     Active Substance: ESOMEPRAZOLE MAGNESIUM
     Indication: Migraine
     Dosage: 40 MG
     Route: 065
  4. TOPIRAMATE [Suspect]
     Active Substance: TOPIRAMATE
     Indication: Migraine
     Dosage: 25 MG
     Route: 065
  5. RIZATRIPTAN BENZOATE [Suspect]
     Active Substance: RIZATRIPTAN BENZOATE
     Indication: Migraine
     Dosage: 10 MG
     Route: 065
  6. METOCLOPRAMIDE HYDROCHLORIDE [Suspect]
     Active Substance: METOCLOPRAMIDE HYDROCHLORIDE
     Indication: Migraine
     Dosage: 5 MG
     Route: 065
  7. SUMATRIPTAN [Suspect]
     Active Substance: SUMATRIPTAN
     Indication: Migraine
     Dosage: 100 MG
  8. DULOXETINE [Suspect]
     Active Substance: DULOXETINE
     Indication: Migraine
     Dosage: 60 MG
     Route: 065
  9. ESCITALOPRAM [Suspect]
     Active Substance: ESCITALOPRAM OXALATE
     Indication: Migraine
     Dosage: 10 MG
     Route: 065
  10. BUTYLSCOPOLAMINE BROMIDE [Suspect]
     Active Substance: BUTYLSCOPOLAMINE BROMIDE
     Indication: Migraine
     Dosage: 10 MG
     Route: 065
  11. LANSOPRAZOLE [Suspect]
     Active Substance: LANSOPRAZOLE
     Indication: Migraine
     Dosage: 30 MG
     Route: 065
  12. VENLAFAXINE [Suspect]
     Active Substance: VENLAFAXINE HYDROCHLORIDE
     Indication: Migraine
     Dosage: 75 MG
     Route: 065
  13. SERTRALINE HYDROCHLORIDE [Suspect]
     Active Substance: SERTRALINE HYDROCHLORIDE
     Indication: Migraine
     Dosage: 50 MG
     Route: 065
  14. FERROUS FUMARATE [Concomitant]
     Active Substance: FERROUS FUMARATE
     Indication: Product used for unknown indication
     Dosage: 300 MG
     Route: 065
  15. DEXAMETHASONE [Concomitant]
     Active Substance: DEXAMETHASONE
     Indication: Product used for unknown indication
     Dosage: 2 MG
     Route: 065
  16. BOTULINUM TOXIN TYPE A [Concomitant]
     Active Substance: BOTULINUM TOXIN TYPE A
     Indication: Product used for unknown indication
     Route: 065
  17. AZITHROMYCIN DIHYDRATE [Concomitant]
     Active Substance: AZITHROMYCIN DIHYDRATE
     Indication: Product used for unknown indication
     Dosage: 500 MG
     Route: 065
  18. POLYETHYLENE GLYCOLS [Concomitant]
     Active Substance: POLYETHYLENE GLYCOLS
     Indication: Product used for unknown indication
     Route: 065
  19. FLUOXETINE [Concomitant]
     Active Substance: FLUOXETINE HYDROCHLORIDE
     Indication: Product used for unknown indication
     Dosage: 20 MG
     Route: 065
  20. METRONIDAZOLE [Concomitant]
     Active Substance: METRONIDAZOLE
     Indication: Product used for unknown indication
     Dosage: 5 MG
     Route: 065
  21. ALLOPURINOL [Concomitant]
     Active Substance: ALLOPURINOL
     Indication: Product used for unknown indication
     Dosage: 25 MG
     Route: 065
  22. ZOPICLONE [Concomitant]
     Active Substance: ZOPICLONE
     Indication: Product used for unknown indication
     Dosage: 5 MG
     Route: 065
  23. NITROFURANTOIN [Concomitant]
     Active Substance: NITROFURANTOIN
     Indication: Product used for unknown indication
     Dosage: 100 MG
     Route: 065
  24. VENLAFAXINE HYDROCHLORIDE [Concomitant]
     Active Substance: VENLAFAXINE HYDROCHLORIDE
     Indication: Product used for unknown indication
     Dosage: 150 MG
     Route: 065
  25. LISINOPRIL [Suspect]
     Active Substance: LISINOPRIL
  26. CODEINE PHOSPHATE [Suspect]
     Active Substance: CODEINE PHOSPHATE
  27. INDOMETHACIN [Suspect]
     Active Substance: INDOMETHACIN
  28. ALBUTEROL [Suspect]
     Active Substance: ALBUTEROL
  29. MOMETASONE FUROATE [Suspect]
     Active Substance: MOMETASONE FUROATE
  30. TRIMETHOPRIM [Suspect]
     Active Substance: TRIMETHOPRIM
  31. ACETAMINOPHEN [Suspect]
     Active Substance: ACETAMINOPHEN
  32. RABEPRAZOLE SODIUM [Suspect]
     Active Substance: RABEPRAZOLE SODIUM
  33. CODEINE [Concomitant]
     Active Substance: CODEINE
  34. LISINOPRIL [Concomitant]
     Active Substance: LISINOPRIL
  35. PREDNISONE [Concomitant]
     Active Substance: PREDNISONE
  36. CEFUROXIME AXETIL [Concomitant]
     Active Substance: CEFUROXIME AXETIL
  37. CEPHALEXIN [Concomitant]
     Active Substance: CEPHALEXIN
  38. FROVATRIPTAN SUCCINATE [Concomitant]
     Active Substance: FROVATRIPTAN SUCCINATE
  39. CLARITHROMYCIN [Concomitant]
     Active Substance: CLARITHROMYCIN
  40. NAPROXEN [Concomitant]
     Active Substance: NAPROXEN
  41. PANTOPRAZOLE SODIUM [Concomitant]
     Active Substance: PANTOPRAZOLE SODIUM
  42. AZITHROMYCIN [Concomitant]
     Active Substance: AZITHROMYCIN
  43. SULFADIAZINE\TRIMETHOPRIM [Concomitant]
     Active Substance: SULFADIAZINE\TRIMETHOPRIM
  44. ACETAMINOPHEN [Concomitant]
     Active Substance: ACETAMINOPHEN
  45. TRAMADOL HYDROCHLORIDE [Suspect]
     Active Substance: TRAMADOL HYDROCHLORIDE
  46. VENLAFAXINE HYDROCHLORIDE [Concomitant]
     Active Substance: VENLAFAXINE HYDROCHLORIDE
  47. ALBUTEROL SULFATE [Concomitant]
     Active Substance: ALBUTEROL SULFATE
  48. OSELTAMIVIR [Concomitant]
     Active Substance: OSELTAMIVIR
  49. FLUCONAZOLE [Suspect]
     Active Substance: FLUCONAZOLE
  50. NASONEX [Concomitant]
     Active Substance: MOMETASONE FUROATE
  51. MORPHINE SULFATE [Concomitant]
     Active Substance: MORPHINE SULFATE
  52. METOCLOPRAMIDE HYDROCHLORIDE [Suspect]
     Active Substance: METOCLOPRAMIDE HYDROCHLORIDE
  53. DANAZOL [Concomitant]
     Active Substance: DANAZOL
  54. AMOXICILLIN TRIHYDRATE [Concomitant]
     Active Substance: AMOXICILLIN
  55. METOCLOPRAMIDE [Concomitant]
     Active Substance: METOCLOPRAMIDE
  56. HYDROMORPHONE HYDROCHLORIDE [Concomitant]
     Active Substance: HYDROMORPHONE HYDROCHLORIDE
  57. FLUTICASONE [Concomitant]
     Active Substance: FLUTICASONE
  58. CYMBALTA [Concomitant]
     Active Substance: DULOXETINE HYDROCHLORIDE
  59. DULOXETINE [Suspect]
     Active Substance: DULOXETINE
  60. CLARITHROMYCIN [Suspect]
     Active Substance: CLARITHROMYCIN
  61. ESCITALOPRAM OXALATE [Suspect]
     Active Substance: ESCITALOPRAM OXALATE
  62. AMOXICILLIN TRIHYDRATE [Suspect]
     Active Substance: AMOXICILLIN
  63. BOTULINUM TOXIN TYPE A [Suspect]
     Active Substance: BOTULINUM TOXIN TYPE A

REACTIONS (10)
  - Drug intolerance [Unknown]
  - Drug ineffective [None]
  - Product use in unapproved indication [Unknown]
  - Angioedema [Unknown]
  - Headache [Unknown]
  - Off label use [Unknown]
  - Hypersensitivity [Unknown]
  - Dysphonia [Unknown]
  - Swelling face [Unknown]
  - Swollen tongue [Unknown]
